FAERS Safety Report 10176505 (Version 1)
Quarter: 2014Q2

REPORT INFORMATION
  Report Type: Spontaneous
  Country: US (occurrence: US)
  Receive Date: 20140516
  Receipt Date: 20140516
  Transmission Date: 20141212
  Serious: No
  Sender: FDA-Public Use
  Company Number: US-009507513-1405USA000627

PATIENT
  Sex: Female

DRUGS (2)
  1. OXYTROL FOR WOMEN [Suspect]
     Indication: HYPERTONIC BLADDER
     Dosage: UNK, UNKNOWN
     Route: 062
  2. NASOCORT [Concomitant]
     Indication: HYPERSENSITIVITY
     Dosage: UNK, UNKNOWN

REACTIONS (3)
  - Therapeutic response changed [Unknown]
  - Inappropriate schedule of drug administration [Unknown]
  - Product adhesion issue [Unknown]
